FAERS Safety Report 5240756-1 (Version None)
Quarter: 2007Q1

REPORT INFORMATION
  Report Type: 
  Country: None (occurrence: None)
  Receive Date: 20061208
  Receipt Date: 20051017
  Transmission Date: 20070707
  Serious: Yes (Other)
  Sender: FDA-Public Use
  Company Number: 2005UW15577

PATIENT
  Age: 89 Year
  Sex: Male
  Weight: 77.564 kg

DRUGS (3)
  1. CRESTOR [Suspect]
     Indication: BLOOD CHOLESTEROL INCREASED
     Dosage: 10 MG PO
     Route: 048
     Dates: start: 20050901
  2. VITAMINS [Concomitant]
  3. ATACAND [Concomitant]

REACTIONS (3)
  - HYPERHIDROSIS [None]
  - PRURITUS [None]
  - URTICARIA [None]
